FAERS Safety Report 4962917-9 (Version None)
Quarter: 2006Q2

REPORT INFORMATION
  Report Type: 
  Country: None (occurrence: None)
  Receive Date: 20060405
  Receipt Date: 20060202
  Transmission Date: 20061013
  Serious: Yes (Other)
  Sender: FDA-Public Use
  Company Number: US-BRISTOL-MYERS SQUIBB COMPANY-13271325

PATIENT
  Age: 78 Year
  Sex: Female

DRUGS (3)
  1. ERBITUX [Suspect]
     Indication: COLORECTAL CANCER METASTATIC
     Route: 042
     Dates: start: 20051111, end: 20051111
  2. BENADRYL [Concomitant]
     Indication: PREMEDICATION
     Route: 048
  3. TYLENOL (CAPLET) [Concomitant]
     Route: 048

REACTIONS (1)
  - GRAND MAL CONVULSION [None]
